FAERS Safety Report 11655284 (Version 8)
Quarter: 2016Q3

REPORT INFORMATION
  Report Type: Report from Study
  Country: JP (occurrence: JP)
  Receive Date: 20151023
  Receipt Date: 20160725
  Transmission Date: 20161109
  Serious: Yes (Death, Other)
  Sender: FDA-Public Use
  Company Number: JP-ASTELLAS-2015JP010064AA

PATIENT
  Age: 81 Year
  Sex: Male
  Weight: 53 kg

DRUGS (9)
  1. BICALUTAMIDE. [Concomitant]
     Active Substance: BICALUTAMIDE
     Indication: PROSTATE CANCER
     Dosage: UNK UNK, UNKNOWN FREQ.
     Route: 048
     Dates: start: 20131115, end: 20140109
  2. DECADRON [Concomitant]
     Active Substance: DEXAMETHASONE
     Indication: PROSTATE CANCER
     Route: 048
     Dates: start: 20131213, end: 20150206
  3. LACTEC                             /00490001/ [Concomitant]
     Indication: FATIGUE
     Route: 042
     Dates: start: 20140624, end: 20140624
  4. LACTEC                             /00490001/ [Concomitant]
     Indication: NAUSEA
     Route: 042
     Dates: start: 20140705, end: 20140705
  5. XTANDI [Suspect]
     Active Substance: ENZALUTAMIDE
     Indication: PROSTATE CANCER
     Route: 048
     Dates: start: 20140605, end: 20140705
  6. DEGARELIX [Suspect]
     Active Substance: DEGARELIX
     Indication: PROSTATE CANCER
     Route: 058
     Dates: start: 20130222, end: 20150206
  7. DEGARELIX [Suspect]
     Active Substance: DEGARELIX
     Indication: PROSTATE CANCER
     Route: 058
     Dates: start: 20130125, end: 20130125
  8. ODYNE [Concomitant]
     Active Substance: FLUTAMIDE
     Indication: PROSTATE CANCER
     Route: 048
     Dates: start: 20140110, end: 20140404
  9. LACTEC                             /00490001/ [Concomitant]
     Indication: DECREASED APPETITE

REACTIONS (7)
  - Fatigue [Recovering/Resolving]
  - Decreased appetite [Recovering/Resolving]
  - Dysgeusia [Not Recovered/Not Resolved]
  - Prostate cancer [Fatal]
  - Nausea [Recovering/Resolving]
  - Apathy [Unknown]
  - Weight decreased [Unknown]

NARRATIVE: CASE EVENT DATE: 20140624
